FAERS Safety Report 14781512 (Version 11)
Quarter: 2024Q3

REPORT INFORMATION
  Report Type: Report from Study
  Country: CA (occurrence: CA)
  Receive Date: 20180419
  Receipt Date: 20240902
  Transmission Date: 20241016
  Serious: Yes (Other)
  Sender: ROCHE
  Company Number: CA-002147023-PHHY2017CA014133

PATIENT
  Age: 34 Year
  Sex: Female
  Weight: 105.0 kg

DRUGS (37)
  1. XOLAIR [Suspect]
     Active Substance: OMALIZUMAB
     Indication: Asthma
     Route: 058
     Dates: start: 20170126
  2. XOLAIR [Suspect]
     Active Substance: OMALIZUMAB
     Dosage: UNK
     Route: 058
     Dates: start: 20170223
  3. XOLAIR [Suspect]
     Active Substance: OMALIZUMAB
     Dosage: UNK
     Route: 058
     Dates: start: 20170310
  4. XOLAIR [Suspect]
     Active Substance: OMALIZUMAB
     Dosage: UNK
     Route: 058
     Dates: start: 20170324
  5. XOLAIR [Suspect]
     Active Substance: OMALIZUMAB
     Route: 058
     Dates: start: 20170421
  6. XOLAIR [Suspect]
     Active Substance: OMALIZUMAB
     Dosage: UNK
     Route: 058
     Dates: start: 20170505
  7. XOLAIR [Suspect]
     Active Substance: OMALIZUMAB
     Dosage: UNK
     Route: 058
     Dates: start: 20170519
  8. XOLAIR [Suspect]
     Active Substance: OMALIZUMAB
     Dosage: UNK
     Route: 058
     Dates: start: 20170602
  9. XOLAIR [Suspect]
     Active Substance: OMALIZUMAB
     Dosage: UNK
     Route: 058
     Dates: start: 20170714
  10. XOLAIR [Suspect]
     Active Substance: OMALIZUMAB
     Dosage: UNK
     Route: 058
     Dates: start: 20171020
  11. XOLAIR [Suspect]
     Active Substance: OMALIZUMAB
     Dosage: UNK
     Route: 058
     Dates: start: 20171215
  12. XOLAIR [Suspect]
     Active Substance: OMALIZUMAB
     Dosage: UNK
     Route: 058
     Dates: start: 20180112
  13. XOLAIR [Suspect]
     Active Substance: OMALIZUMAB
     Dosage: 375 MG, BIW
     Route: 058
     Dates: start: 20180323
  14. XOLAIR [Suspect]
     Active Substance: OMALIZUMAB
     Route: 058
     Dates: start: 20180406
  15. XOLAIR [Suspect]
     Active Substance: OMALIZUMAB
     Route: 058
     Dates: start: 20190301
  16. XOLAIR [Suspect]
     Active Substance: OMALIZUMAB
     Route: 058
  17. XOLAIR [Suspect]
     Active Substance: OMALIZUMAB
     Route: 058
  18. XOLAIR [Suspect]
     Active Substance: OMALIZUMAB
     Route: 058
  19. XOLAIR [Suspect]
     Active Substance: OMALIZUMAB
     Route: 058
  20. XOLAIR [Suspect]
     Active Substance: OMALIZUMAB
     Route: 058
  21. XOLAIR [Suspect]
     Active Substance: OMALIZUMAB
     Route: 058
     Dates: start: 20221001
  22. XOLAIR [Suspect]
     Active Substance: OMALIZUMAB
     Route: 058
  23. XOLAIR [Suspect]
     Active Substance: OMALIZUMAB
     Route: 058
  24. XOLAIR [Suspect]
     Active Substance: OMALIZUMAB
     Route: 058
  25. XOLAIR [Suspect]
     Active Substance: OMALIZUMAB
     Route: 058
  26. XOLAIR [Suspect]
     Active Substance: OMALIZUMAB
     Route: 058
  27. XOLAIR [Suspect]
     Active Substance: OMALIZUMAB
     Route: 058
  28. XOLAIR [Suspect]
     Active Substance: OMALIZUMAB
     Route: 058
  29. XOLAIR [Suspect]
     Active Substance: OMALIZUMAB
     Route: 058
  30. XOLAIR [Suspect]
     Active Substance: OMALIZUMAB
     Route: 058
  31. MONTELUKAST SODIUM [Suspect]
     Active Substance: MONTELUKAST\MONTELUKAST SODIUM
     Indication: Hypersensitivity
     Route: 065
  32. GLYCOPYRROLATE [Concomitant]
     Active Substance: GLYCOPYRROLATE
  33. ALVESCO [Concomitant]
     Active Substance: CICLESONIDE
     Indication: Product used for unknown indication
     Route: 065
  34. ADVAIR HFA [Concomitant]
     Active Substance: FLUTICASONE PROPIONATE\SALMETEROL XINAFOATE
     Indication: Product used for unknown indication
     Route: 065
  35. SINGULAIR [Concomitant]
     Active Substance: MONTELUKAST SODIUM
     Indication: Product used for unknown indication
     Route: 065
  36. VENTOLIN [Concomitant]
     Active Substance: ALBUTEROL SULFATE
     Indication: Product used for unknown indication
     Route: 065
  37. PREDNISONE [Concomitant]
     Active Substance: PREDNISONE
     Indication: Product used for unknown indication
     Dosage: 15 MG, UNK
     Route: 065
     Dates: end: 20170406

REACTIONS (35)
  - Pneumonia [Not Recovered/Not Resolved]
  - Laryngitis fungal [Recovering/Resolving]
  - Throat tightness [Recovering/Resolving]
  - Bronchitis [Unknown]
  - Gait disturbance [Unknown]
  - Wheezing [Not Recovered/Not Resolved]
  - Feeling cold [Not Recovered/Not Resolved]
  - Cold sweat [Recovered/Resolved]
  - Malaise [Not Recovered/Not Resolved]
  - Influenza [Unknown]
  - Pyrexia [Unknown]
  - Hot flush [Unknown]
  - Vomiting [Unknown]
  - White blood cell count increased [Unknown]
  - Body temperature increased [Unknown]
  - Heart rate increased [Unknown]
  - Respiratory tract congestion [Unknown]
  - Weight decreased [Unknown]
  - Laryngospasm [Unknown]
  - SARS-CoV-2 test positive [Unknown]
  - Dysphonia [Unknown]
  - Nasopharyngitis [Unknown]
  - Nausea [Not Recovered/Not Resolved]
  - Asthma [Unknown]
  - Diarrhoea [Unknown]
  - Hypersensitivity [Unknown]
  - Influenza like illness [Not Recovered/Not Resolved]
  - Incorrect dose administered [Unknown]
  - Anaphylactoid reaction [Unknown]
  - Lower respiratory tract infection [Unknown]
  - Pruritus [Unknown]
  - Fungal pharyngitis [Unknown]
  - Cough [Unknown]
  - Sputum discoloured [Unknown]
  - Dyspnoea [Recovered/Resolved]

NARRATIVE: CASE EVENT DATE: 20170126
